FAERS Safety Report 7570361-3 (Version None)
Quarter: 2011Q2

REPORT INFORMATION
  Report Type: 
  Country: None (occurrence: None)
  Receive Date: 20110620
  Receipt Date: 20110603
  Transmission Date: 20111010
  Serious: Yes (Life-Threatening, Hospitalization)
  Sender: FDA-Public Use
  Company Number: 2011MA006770

PATIENT
  Age: 11 Month
  Sex: Female

DRUGS (3)
  1. PROPRANOLOL HCL [Suspect]
     Indication: HAEMANGIOMA
  2. IBUPROFEN [Concomitant]
  3. BENZOCAINE [Concomitant]

REACTIONS (4)
  - UNRESPONSIVE TO STIMULI [None]
  - BODY TEMPERATURE DECREASED [None]
  - HYPOGLYCAEMIA [None]
  - BLOOD PRESSURE DECREASED [None]
